FAERS Safety Report 9920758 (Version 1)
Quarter: 2014Q1

REPORT INFORMATION
  Report Type: Spontaneous
  Country: JP (occurrence: JP)
  Receive Date: 20140224
  Receipt Date: 20140224
  Transmission Date: 20141002
  Serious: Yes (Death)
  Sender: FDA-Public Use
  Company Number: JP-GILEAD-2014-0095181

PATIENT
  Sex: Male

DRUGS (2)
  1. AMBRISENTAN [Suspect]
     Indication: PULMONARY ARTERIAL HYPERTENSION
     Dosage: 2.5MG PER DAY
     Route: 048
  2. BERASUS [Concomitant]
     Indication: PULMONARY ARTERIAL HYPERTENSION
     Dosage: 60MCG TWICE PER DAY
     Route: 048

REACTIONS (1)
  - Haemangioma [Fatal]
